FAERS Safety Report 8683026 (Version 2)
Quarter: 2012Q4

REPORT INFORMATION
  Report Type: 
  Country: US (occurrence: US)
  Receive Date: 20120725
  Receipt Date: 20120829
  Transmission Date: 20130627
  Serious: No
  Sender: FDA-Public Use
  Company Number: US-PFIZER INC-2012176639

PATIENT
  Age: 44 Year
  Sex: Female
  Weight: 74.83 kg

DRUGS (7)
  1. LYRICA [Suspect]
     Indication: COMPLEX REGIONAL PAIN SYNDROME
     Dosage: 50 mg, 2x/day, 1 capsule every 12 hours
     Route: 048
     Dates: start: 20120720
  2. DIAZEPAM [Concomitant]
     Indication: ANXIETY
     Dosage: 5 mg, 3x/day
     Route: 048
     Dates: start: 20111031
  3. ALEVE [Concomitant]
     Dosage: 220 mg, 1x/day
     Route: 048
     Dates: start: 20080919
  4. HYDROCODONE-ACETAMINOPHEN [Concomitant]
     Indication: ANALGESIC THERAPY
     Dosage: 10-325mg 1 tablet every 4 to 6 hours as needed
     Route: 048
     Dates: start: 20050920
  5. METROGEL [Concomitant]
     Dosage: Apply and rub in a thin film to affected areas once daily
     Dates: start: 20090317
  6. PEPCID AC [Concomitant]
     Dosage: 20 mg, 1x/day 1 tablet as directed
     Route: 048
     Dates: start: 20071218
  7. VITAMIN B6 [Concomitant]
     Dosage: 100 mg, UNK
     Route: 048
     Dates: start: 20101025

REACTIONS (5)
  - Insomnia [Unknown]
  - Tachyphrenia [Not Recovered/Not Resolved]
  - Nervousness [Not Recovered/Not Resolved]
  - Agitation [Not Recovered/Not Resolved]
  - Anxiety [Not Recovered/Not Resolved]
